FAERS Safety Report 8960781 (Version 1)
Quarter: 2012Q4

REPORT INFORMATION
  Report Type: Spontaneous
  Country: US (occurrence: None)
  Receive Date: 20121120
  Receipt Date: 20121120
  Transmission Date: 20130627
  Serious: Yes (Other)
  Sender: FDA-Public Use
  Company Number: 2012033981

PATIENT
  Sex: Female
  Weight: 104.33 kg

DRUGS (18)
  1. HIZENTRA [Suspect]
     Dosage: 1x / week, 4 gm 20 ml vial ; infuse in 4-6 sites over 1-2 hours; started in Jul-2010 (Subcutaneous)
     Route: 058
  2. NOVOLIN [Suspect]
     Route: 057
  3. ASPIRIN [Concomitant]
  4. LIPITOR (ATORVASTATIN CALCIUM) [Concomitant]
  5. VITAMIN D (ERGOCALCIFEROL) [Concomitant]
  6. LISINOPRIL (LISINOPRIL) [Concomitant]
  7. VITAMIN D (ERGOCALCIFEROL) [Concomitant]
  8. LISINOPRIL (LISINOPRIL) [Concomitant]
  9. NYSTATIN (NYSTATIN) [Concomitant]
  10. EPIPEN (EPINEPHRINE) [Concomitant]
  11. ANASTROZOLE (ANASTROZOLE) [Concomitant]
  12. ANASTROZOLE (ANASTROZOLE) [Concomitant]
  13. GLIMEPIRIDE (GLIMEPIRIDE) [Concomitant]
  14. HYDROCHLOROTHIAZIDE (HYDROCHLOROTHIAZIDE) [Concomitant]
  15. DIPHENHYDRAMINE (HYDROCHLOROTHIAZIDE) [Concomitant]
  16. CALCIUM (CALCIUM) [Concomitant]
  17. NORVASC (AMLODIPINE) [Concomitant]
  18. ACETAMINOPHEN (PARACETAMOL),ACETYLSAL ACID,CAFFEINE CITRATE [Concomitant]

REACTIONS (2)
  - Breast cancer [None]
  - Injection site bruising [None]
